FAERS Safety Report 24980695 (Version 3)
Quarter: 2025Q3

REPORT INFORMATION
  Report Type: Report from Study
  Country: US (occurrence: US)
  Receive Date: 20250218
  Receipt Date: 20250801
  Transmission Date: 20251021
  Serious: Yes (Other)
  Sender: SUNOVION
  Company Number: US-SMPA-2025SPA001610

PATIENT

DRUGS (1)
  1. ORGOVYX [Suspect]
     Active Substance: RELUGOLIX
     Indication: Prostate cancer
     Dosage: 120 MG, QD
     Route: 048
     Dates: start: 20250107

REACTIONS (8)
  - Deafness [Unknown]
  - Fall [Unknown]
  - Hip fracture [Unknown]
  - Pneumonia [Unknown]
  - Gait disturbance [Unknown]
  - Prostatic specific antigen increased [Unknown]
  - Urinary tract infection [Unknown]
  - Incorrect dose administered [Unknown]
